FAERS Safety Report 6442850-6 (Version None)
Quarter: 2009Q4

REPORT INFORMATION
  Report Type: 
  Country: None (occurrence: None)
  Receive Date: 20091113
  Receipt Date: 20091106
  Transmission Date: 20100525
  Serious: Yes (Other)
  Sender: FDA-Public Use
  Company Number: 1000009956

PATIENT
  Sex: Male

DRUGS (2)
  1. SAVELLA [Suspect]
     Indication: PAIN
     Dosage: 12.5 MG (12.5 MG, 1 IN 1 D),ORAL : 25 MG (12.5 MG,2 IN 1 D), ORAL :  50 MG (25 MG,2 IN 1 D), ORAL
     Route: 048
  2. SAVELLA [Suspect]
     Indication: PAIN
     Dosage: 100 MG (50 MG,2 IN 1 D), ORAL
     Route: 048

REACTIONS (2)
  - LOSS OF CONSCIOUSNESS [None]
  - SYNCOPE [None]
